FAERS Safety Report 4653192-3 (Version None)
Quarter: 2005Q2

REPORT INFORMATION
  Report Type: 
  Country: None (occurrence: None)
  Receive Date: 20050503
  Receipt Date: 20050418
  Transmission Date: 20051028
  Serious: No
  Sender: FDA-Public Use
  Company Number: A01200502685

PATIENT
  Age: 57 Year
  Sex: Male

DRUGS (7)
  1. PLAVIX [Suspect]
     Indication: ISCHAEMIA
     Dosage: 75 MG OD ORAL
     Route: 048
     Dates: start: 20050225
  2. PLAVIX [Suspect]
     Indication: PROPHYLAXIS
     Dosage: 75 MG OD ORAL
     Route: 048
     Dates: start: 20050225
  3. PLAVIX [Suspect]
     Indication: STENT PLACEMENT
     Dosage: 75 MG OD ORAL
     Route: 048
     Dates: start: 20050225
  4. FELODIPINE [Suspect]
     Indication: HYPERTENSION
     Dosage: 5 MG QD ORAL
     Route: 048
     Dates: start: 20050206, end: 20050411
  5. METOPROLOL TARTRATE [Concomitant]
  6. ASPIRIN [Concomitant]
  7. SIMVASTATIN [Concomitant]

REACTIONS (3)
  - BLOOD LACTATE DEHYDROGENASE INCREASED [None]
  - MYALGIA [None]
  - THROMBOPHLEBITIS [None]
